FAERS Safety Report 17855161 (Version 2)
Quarter: 2020Q2

REPORT INFORMATION
  Report Type: Spontaneous
  Country: IT (occurrence: IT)
  Receive Date: 20200603
  Receipt Date: 20200608
  Transmission Date: 20200714
  Serious: Yes (Other)
  Sender: FDA-Public Use
  Company Number: IT-MYLANLABS-2020M1053148

PATIENT
  Age: 13 Year
  Sex: Female
  Weight: 58 kg

DRUGS (1)
  1. VANCOMYCIN [Suspect]
     Active Substance: VANCOMYCIN
     Indication: ANTIBIOTIC PROPHYLAXIS
     Dosage: 1000 MILLIGRAM, TOTAL
     Route: 042
     Dates: start: 20200519, end: 20200519

REACTIONS (6)
  - Headache [Recovered/Resolved]
  - Anaphylactic reaction [Recovered/Resolved]
  - Incorrect drug administration rate [Recovered/Resolved]
  - Face oedema [Recovered/Resolved]
  - Vomiting [Recovered/Resolved]
  - Rash pruritic [Recovered/Resolved]

NARRATIVE: CASE EVENT DATE: 20200519
